FAERS Safety Report 8490430-3 (Version None)
Quarter: 2012Q3

REPORT INFORMATION
  Report Type: 
  Country: None (occurrence: None)
  Receive Date: 20120705
  Receipt Date: 20120626
  Transmission Date: 20120928
  Serious: Yes (Other)
  Sender: FDA-Public Use
  Company Number: JP-B.I. PHARMACEUTICALS,INC./RIDGEFIELD-2012-BP-14591NB

PATIENT
  Age: 86 Year
  Sex: Female

DRUGS (4)
  1. ALDACTONE [Suspect]
     Route: 065
  2. BISOPROLOL FUMARATE [Concomitant]
     Route: 065
  3. PRADAXA [Suspect]
     Indication: ATRIAL FIBRILLATION
     Dosage: 220 MG
     Route: 048
     Dates: start: 20110401, end: 20120622
  4. TORSEMIDE [Suspect]
     Route: 065

REACTIONS (4)
  - CARDIAC FAILURE [None]
  - SPEECH DISORDER [None]
  - ABDOMINAL DISCOMFORT [None]
  - THROMBOCYTOPENIA [None]
